FAERS Safety Report 5510466-1 (Version None)
Quarter: 2007Q4

REPORT INFORMATION
  Report Type: 
  Country: None (occurrence: None)
  Receive Date: 20071108
  Receipt Date: 20071004
  Transmission Date: 20080405
  Serious: No
  Sender: FDA-Public Use
  Company Number: BR-BAXTER-2007BH008232

PATIENT
  Sex: Male

DRUGS (13)
  1. HEMOFIL M [Suspect]
     Indication: HAEMOPHILIA
     Dosage: DOSE UNIT:UNKNOWN
     Route: 065
  2. HEMOFIL M [Suspect]
     Dosage: DOSE UNIT:UNKNOWN
     Route: 065
  3. HEMOFIL M [Suspect]
     Dosage: DOSE UNIT:UNKNOWN
     Route: 065
  4. HEMOFIL M [Suspect]
     Dosage: DOSE UNIT:UNKNOWN
     Route: 065
  5. HEMOFIL M [Suspect]
     Dosage: DOSE UNIT:UNKNOWN
     Route: 065
  6. HEMOFIL M [Suspect]
     Dosage: DOSE UNIT:UNKNOWN
     Route: 065
  7. HEMOFIL M [Suspect]
     Dosage: DOSE UNIT:UNKNOWN
     Route: 065
  8. HEMOFIL M [Suspect]
     Dosage: DOSE UNIT:UNKNOWN
     Route: 065
  9. FEIBA VH IMMUNO [Suspect]
     Indication: HAEMOPHILIA
     Dosage: DOSE UNIT:UNKNOWN
     Route: 065
  10. FEIBA VH IMMUNO [Suspect]
     Dosage: DOSE UNIT:UNKNOWN
     Route: 065
  11. FEIBA VH IMMUNO [Suspect]
     Dosage: DOSE UNIT:UNKNOWN
     Route: 065
  12. FEIBA VH IMMUNO [Suspect]
     Dosage: DOSE UNIT:UNKNOWN
     Route: 065
  13. PROTHROMPLEX TOTAL S-TIM4 [Suspect]
     Indication: HAEMOPHILIA
     Dosage: DOSE UNIT:UNKNOWN
     Route: 065

REACTIONS (1)
  - HEPATITIS C VIRUS [None]
